FAERS Safety Report 18745329 (Version 5)
Quarter: 2021Q4

REPORT INFORMATION
  Report Type: Other
  Country: US (occurrence: None)
  Receive Date: 20210115
  Receipt Date: 20211227
  Transmission Date: 20220304
  Serious: Yes (Hospitalization)
  Sender: FDA-Public Use
  Company Number: US-ROCHE-2749061

PATIENT
  Sex: Female
  Weight: 59.928 kg

DRUGS (47)
  1. ACTEMRA [Suspect]
     Active Substance: TOCILIZUMAB
     Indication: Giant cell arteritis
     Dosage: INJECT 0.9 ML SUBCUTANEOUSLY EVERY OTHER WEEK?SIZE/STRENGTH: 162 MG/ 0.9ML
     Route: 058
  2. ACTEMRA [Suspect]
     Active Substance: TOCILIZUMAB
  3. ACTEMRA [Suspect]
     Active Substance: TOCILIZUMAB
     Indication: Hypercholesterolaemia
     Route: 058
     Dates: start: 202103
  4. ACTEMRA [Suspect]
     Active Substance: TOCILIZUMAB
  5. ACTEMRA [Suspect]
     Active Substance: TOCILIZUMAB
     Indication: Temporomandibular joint syndrome
  6. ACTEMRA [Suspect]
     Active Substance: TOCILIZUMAB
  7. ACTEMRA [Suspect]
     Active Substance: TOCILIZUMAB
     Indication: Dermatochalasis
  8. ACTEMRA [Suspect]
     Active Substance: TOCILIZUMAB
  9. ACTEMRA [Suspect]
     Active Substance: TOCILIZUMAB
     Indication: Jarisch-Herxheimer reaction
  10. ACTEMRA [Suspect]
     Active Substance: TOCILIZUMAB
  11. ACTEMRA [Suspect]
     Active Substance: TOCILIZUMAB
     Indication: Oesophagitis
  12. ACTEMRA [Suspect]
     Active Substance: TOCILIZUMAB
  13. ACTEMRA [Suspect]
     Active Substance: TOCILIZUMAB
     Indication: Oesophageal motility disorder
  14. ACTEMRA [Suspect]
     Active Substance: TOCILIZUMAB
  15. ACTEMRA [Suspect]
     Active Substance: TOCILIZUMAB
     Indication: Osteoarthritis
  16. ACTEMRA [Suspect]
     Active Substance: TOCILIZUMAB
  17. ACTEMRA [Suspect]
     Active Substance: TOCILIZUMAB
     Indication: Hypercalciuria
  18. ACTEMRA [Suspect]
     Active Substance: TOCILIZUMAB
  19. ACTEMRA [Suspect]
     Active Substance: TOCILIZUMAB
     Indication: Breast cancer
  20. ACTEMRA [Suspect]
     Active Substance: TOCILIZUMAB
  21. ACTEMRA [Suspect]
     Active Substance: TOCILIZUMAB
     Indication: Arthralgia
  22. ACTEMRA [Suspect]
     Active Substance: TOCILIZUMAB
  23. ACTEMRA [Suspect]
     Active Substance: TOCILIZUMAB
     Indication: COVID-19
  24. ACTEMRA [Suspect]
     Active Substance: TOCILIZUMAB
  25. ACTEMRA [Suspect]
     Active Substance: TOCILIZUMAB
     Indication: Rhinitis allergic
  26. ACTEMRA [Suspect]
     Active Substance: TOCILIZUMAB
  27. PREDNISONE [Concomitant]
     Active Substance: PREDNISONE
     Indication: COVID-19
  28. TYLENOL [Concomitant]
     Active Substance: ACETAMINOPHEN
     Route: 048
  29. PROVENTIL HFA [Concomitant]
     Active Substance: ALBUTEROL SULFATE
     Indication: Dyspnoea
     Dosage: 2 PFF EVERY 6 HRS
  30. LIPITOR [Concomitant]
     Active Substance: ATORVASTATIN CALCIUM
     Route: 048
  31. BENEFIBER [Concomitant]
     Active Substance: STARCH, WHEAT
     Route: 048
  32. GUAR GUM [Concomitant]
     Active Substance: GUAR GUM
     Route: 048
  33. BIOTIN [Concomitant]
     Active Substance: BIOTIN
     Route: 048
  34. CALCIUM CARBONATE\CHOLECALCIFEROL [Concomitant]
     Active Substance: CALCIUM CARBONATE\CHOLECALCIFEROL
     Dosage: CALCIUM 600 + VITAMIN D3 600 MG
  35. CETIRIZINE HCL [Concomitant]
     Active Substance: CETIRIZINE HYDROCHLORIDE
     Route: 048
  36. VITAMIN D3 [Concomitant]
     Active Substance: CHOLECALCIFEROL
     Route: 048
  37. DOCUSATE SODIUM [Concomitant]
     Active Substance: DOCUSATE SODIUM
     Route: 048
  38. ESTRACE [Concomitant]
     Active Substance: ESTRADIOL
  39. PEPCID [Concomitant]
     Active Substance: FAMOTIDINE
     Route: 048
  40. FLONASE [Concomitant]
     Active Substance: FLUTICASONE PROPIONATE
  41. ZOFRAN [Concomitant]
     Active Substance: ONDANSETRON HYDROCHLORIDE
     Indication: Nausea
     Route: 048
  42. ZOFRAN [Concomitant]
     Active Substance: ONDANSETRON HYDROCHLORIDE
     Indication: Vomiting
  43. PROTONIX DR [Concomitant]
     Dosage: BEFORE BREAKFAST
     Route: 048
  44. K-TAB [Concomitant]
     Active Substance: POTASSIUM CHLORIDE
     Route: 048
  45. DELTASONE [Concomitant]
     Active Substance: PREDNISONE
     Route: 048
  46. DESYREL [Concomitant]
     Active Substance: TRAZODONE HYDROCHLORIDE
     Route: 048
  47. KENALOG [Concomitant]
     Active Substance: TRIAMCINOLONE ACETONIDE
     Dosage: APPLY TO AFFECTED AREA ONCE A DAILY AS NEEDED

REACTIONS (11)
  - Asthenia [Unknown]
  - COVID-19 [Unknown]
  - Nervousness [Unknown]
  - Immunodeficiency [Unknown]
  - Nasopharyngitis [Unknown]
  - Accidental exposure to product [Unknown]
  - Haemorrhage [Recovered/Resolved]
  - Erythema [Recovered/Resolved]
  - Inappropriate schedule of product administration [Unknown]
  - Product complaint [Unknown]
  - Cough [Unknown]
